FAERS Safety Report 6221716-0 (Version None)
Quarter: 2009Q2

REPORT INFORMATION
  Report Type: 
  Country: None (occurrence: None)
  Receive Date: 20090608
  Receipt Date: 20090514
  Transmission Date: 20091009
  Serious: No
  Sender: FDA-Public Use
  Company Number: TPA2009A01038

PATIENT
  Sex: Male

DRUGS (1)
  1. PREVACID [Suspect]
     Indication: BARRETT'S OESOPHAGUS
     Dosage: 30 MG
     Dates: start: 19950101

REACTIONS (13)
  - ASTHENIA [None]
  - CHEST PAIN [None]
  - DEPRESSION [None]
  - DIZZINESS [None]
  - DRY EYE [None]
  - FATIGUE [None]
  - HYPOAESTHESIA FACIAL [None]
  - IRRITABILITY [None]
  - MALAISE [None]
  - MOOD SWINGS [None]
  - TREMOR [None]
  - VISION BLURRED [None]
  - VITAMIN B12 DECREASED [None]
